FAERS Safety Report 7824604-9 (Version None)
Quarter: 2011Q4

REPORT INFORMATION
  Report Type: 
  Country: None (occurrence: None)
  Receive Date: 20111019
  Receipt Date: 20111005
  Transmission Date: 20120403
  Serious: Yes (Hospitalization, Other)
  Sender: FDA-Public Use
  Company Number: US-ELI_LILLY_AND_COMPANY-US201010001035

PATIENT
  Sex: Female

DRUGS (13)
  1. CALCIUM + VITAMIN D [Concomitant]
     Dosage: 100 MG, DAILY (1/D)
  2. CYTOMEL [Concomitant]
  3. NEXIUM [Concomitant]
  4. MULTAQ [Concomitant]
  5. ALLOPURINOL [Concomitant]
  6. FORTEO [Suspect]
     Dosage: 20 UG, DAILY (1/D)
  7. FORTEO [Suspect]
     Dosage: 20 UG, DAILY (1/D)
  8. ZOCOR [Concomitant]
  9. FORTEO [Suspect]
     Indication: OSTEOPOROSIS
     Dosage: 20 UG, DAILY (1/D)
     Dates: start: 20100901
  10. FORTEO [Suspect]
     Dosage: 20 UG, DAILY (1/D)
  11. FORTEO [Suspect]
     Dosage: 20 UG, DAILY (1/D)
  12. FORTEO [Suspect]
     Dosage: 20 UG, DAILY (1/D)
  13. COUMADIN [Concomitant]

REACTIONS (19)
  - ROAD TRAFFIC ACCIDENT [None]
  - OEDEMA PERIPHERAL [None]
  - TREMOR [None]
  - INJECTION SITE HAEMATOMA [None]
  - ARTHRALGIA [None]
  - DIARRHOEA [None]
  - WEIGHT DECREASED [None]
  - HYPOAESTHESIA [None]
  - NECK PAIN [None]
  - VOMITING [None]
  - ABDOMINAL PAIN [None]
  - THROMBOSIS [None]
  - ABASIA [None]
  - INJECTION SITE PAIN [None]
  - DIZZINESS [None]
  - MALAISE [None]
  - MUSCULOSKELETAL PAIN [None]
  - PARAESTHESIA [None]
  - NAUSEA [None]
